FAERS Safety Report 9745058 (Version 1)
Quarter: 2013Q4

REPORT INFORMATION
  Report Type: Report from Study
  Country: US (occurrence: US)
  Receive Date: 20131211
  Receipt Date: 20131211
  Transmission Date: 20140711
  Serious: Yes (Death)
  Sender: FDA-Public Use
  Company Number: US-ROCHE-1318051

PATIENT
  Age: 54 Year
  Sex: Male
  Weight: 93.52 kg

DRUGS (12)
  1. AVASTIN [Suspect]
     Indication: COLON CANCER
     Dosage: IN 1000ML NORMAL SALINE
     Route: 042
     Dates: start: 20100113
  2. AVASTIN [Suspect]
     Indication: METASTASIS
  3. OXALIPLATIN [Concomitant]
  4. ALOXI [Concomitant]
     Route: 042
     Dates: start: 20100111
  5. 5-FLUOROURACIL [Concomitant]
     Route: 042
     Dates: start: 20100111
  6. 5-FLUOROURACIL [Concomitant]
     Route: 042
  7. LORAZEPAM [Concomitant]
     Indication: NAUSEA
     Route: 042
     Dates: start: 20101011, end: 20101011
  8. LORAZEPAM [Concomitant]
     Indication: VOMITING
  9. FUSILEV [Concomitant]
     Route: 042
  10. FOLINIC ACID [Concomitant]
     Route: 065
     Dates: start: 20100111
  11. NORMAL SALINE [Concomitant]
     Route: 042
  12. HEPARIN [Concomitant]
     Dosage: 5 CC 100U/ML
     Route: 065

REACTIONS (4)
  - Death [Fatal]
  - Neuropathy peripheral [Unknown]
  - Nausea [Recovered/Resolved]
  - Vomiting [Recovered/Resolved]
